FAERS Safety Report 4540984-4 (Version None)
Quarter: 2004Q4

REPORT INFORMATION
  Report Type: 
  Country: None (occurrence: None)
  Receive Date: 20041228
  Receipt Date: 20041215
  Transmission Date: 20050328
  Serious: Yes (Hospitalization)
  Sender: FDA-Public Use
  Company Number: 2004117047

PATIENT
  Age: 35 Year
  Sex: Male
  Weight: 74 kg

DRUGS (4)
  1. BEXTRA [Suspect]
     Indication: BACK PAIN
  2. ATENOLOL [Concomitant]
  3. HYDROCHLOROTHIAZIDE [Concomitant]
  4. ISRADIPINE [Concomitant]

REACTIONS (3)
  - ACUTE RESPIRATORY FAILURE [None]
  - ANEURYSM [None]
  - SUPERIOR MESENTERIC ARTERY SYNDROME [None]
